FAERS Safety Report 6543527-9 (Version None)
Quarter: 2010Q1

REPORT INFORMATION
  Report Type: 
  Country: None (occurrence: None)
  Receive Date: 20100120
  Receipt Date: 20100111
  Transmission Date: 20100710
  Serious: Yes (Death, Life-Threatening)
  Sender: FDA-Public Use
  Company Number: D0065975A

PATIENT
  Age: 61 Year
  Sex: Male
  Weight: 70 kg

DRUGS (21)
  1. ARIXTRA [Suspect]
     Dosage: 2.5MG PER DAY
     Route: 058
     Dates: start: 20091020, end: 20091028
  2. ASS [Suspect]
     Dosage: 100MG PER DAY
     Route: 048
     Dates: start: 20091020, end: 20091028
  3. AGOPTON 15 [Suspect]
     Dosage: 15MG PER DAY
     Route: 048
     Dates: start: 20091020, end: 20091028
  4. FINLEPSIN [Suspect]
     Dosage: 200MG THREE TIMES PER DAY
     Route: 048
     Dates: start: 20091020, end: 20091028
  5. SIMVASTATIN [Suspect]
     Dosage: 20MG PER DAY
     Route: 048
     Dates: start: 20091025, end: 20091027
  6. METOPROLOL SUCCINATE [Suspect]
     Dosage: 70.75MG UNKNOWN
     Route: 048
     Dates: start: 20091020, end: 20091024
  7. TAVOR [Suspect]
     Dosage: 1MG VARIABLE DOSE
     Route: 048
     Dates: start: 20091020, end: 20091027
  8. DELIX [Suspect]
     Dosage: 2.5MG PER DAY
     Route: 048
     Dates: start: 20091021, end: 20091024
  9. ZOPICLON [Suspect]
     Dosage: 7.5MG PER DAY
     Route: 048
     Dates: start: 20091020, end: 20091026
  10. EUNERPAN [Suspect]
     Route: 065
     Dates: start: 20091020, end: 20091027
  11. HAEMITON [Suspect]
     Dosage: .075MG TWICE PER DAY
     Route: 048
     Dates: start: 20091020, end: 20091024
  12. TORSEMIDE [Suspect]
     Dosage: 10MG VARIABLE DOSE
     Route: 048
     Dates: start: 20091020, end: 20091027
  13. NOREPINEPHRINE BITARTRATE [Suspect]
     Route: 065
     Dates: start: 20091025, end: 20091028
  14. SULBACTAM [Suspect]
     Dosage: 3G THREE TIMES PER DAY
     Route: 042
     Dates: start: 20091025, end: 20091027
  15. FLUNITRAZEPAM [Suspect]
     Dosage: 1MG UNKNOWN
     Route: 065
     Dates: start: 20091028
  16. FUROSEMID [Suspect]
     Dosage: 20MG THREE TIMES PER DAY
     Route: 042
     Dates: start: 20091028
  17. ZIENAM [Suspect]
     Dosage: 1G THREE TIMES PER DAY
     Route: 065
     Dates: start: 20091028
  18. BERLINSULIN H [Concomitant]
     Route: 058
     Dates: start: 20091020, end: 20091028
  19. BERLINSULIN [Concomitant]
     Route: 058
     Dates: start: 20091020, end: 20091021
  20. NAC 600 [Concomitant]
     Dosage: 600MG UNKNOWN
     Route: 048
     Dates: start: 20091020, end: 20091028
  21. KALINOR [Concomitant]
     Dosage: 2002.17MG VARIABLE DOSE
     Route: 048
     Dates: start: 20091021, end: 20091027

REACTIONS (5)
  - CARDIOVASCULAR DISORDER [None]
  - RENAL FAILURE ACUTE [None]
  - RHABDOMYOLYSIS [None]
  - SEPSIS [None]
  - URINE COLOUR ABNORMAL [None]
